FAERS Safety Report 6399496-8 (Version None)
Quarter: 2009Q4

REPORT INFORMATION
  Report Type: 
  Country: None (occurrence: None)
  Receive Date: 20091014
  Receipt Date: 20091008
  Transmission Date: 20100525
  Serious: Yes (Other)
  Sender: FDA-Public Use
  Company Number: US-JNJFOC-20090902293

PATIENT
  Sex: Female
  Weight: 58.97 kg

DRUGS (4)
  1. LEVAQUIN [Suspect]
     Indication: ENTEROCOLITIS INFECTIOUS
     Route: 042
     Dates: start: 20090504, end: 20090508
  2. LEVAQUIN [Suspect]
     Dosage: 10 TABLETS
     Route: 048
     Dates: start: 20090501, end: 20090601
  3. COPAXONE [Concomitant]
     Indication: MULTIPLE SCLEROSIS
     Route: 065
  4. UNKNOWN MEDICATION [Concomitant]
     Route: 065

REACTIONS (5)
  - ARTHRALGIA [None]
  - CHROMATURIA [None]
  - JOINT INJURY [None]
  - TENDON RUPTURE [None]
  - VULVOVAGINAL MYCOTIC INFECTION [None]
